FAERS Safety Report 7757749-2 (Version None)
Quarter: 2011Q3

REPORT INFORMATION
  Report Type: 
  Country: None (occurrence: None)
  Receive Date: 20110917
  Receipt Date: 20110905
  Transmission Date: 20111222
  Serious: Yes (Hospitalization)
  Sender: FDA-Public Use
  Company Number: AU-MYLANLABS-2011S1018936

PATIENT
  Age: 61 Year
  Sex: Male

DRUGS (3)
  1. CITALOPRAM HYDROBROMIDE [Suspect]
     Indication: DEPRESSION
     Route: 065
  2. OXYCODONE HCL [Concomitant]
     Indication: BACK PAIN
     Route: 065
  3. FLUOROURACIL [Suspect]
     Indication: SINUS BRADYCARDIA
     Dosage: 225 MG/M2/DAY INFUSION
     Route: 065

REACTIONS (3)
  - CREPITATIONS [None]
  - ELECTROCARDIOGRAM ST SEGMENT ELEVATION [None]
  - SINUS BRADYCARDIA [None]
